FAERS Safety Report 13029066 (Version 1)
Quarter: 2016Q4

REPORT INFORMATION
  Report Type: Spontaneous
  Country: US (occurrence: US)
  Receive Date: 20161215
  Receipt Date: 20161215
  Transmission Date: 20170207
  Serious: No
  Sender: FDA-Public Use
  Company Number: US-AUROBINDO-AUR-APU-2016-05121

PATIENT
  Sex: Male

DRUGS (2)
  1. MIRTAZAPINE TABLETS 7.5 MG [Suspect]
     Active Substance: MIRTAZAPINE
     Dosage: 7.5 MG, DAILY
     Route: 065
  2. MIRTAZAPINE TABLETS 7.5 MG [Suspect]
     Active Substance: MIRTAZAPINE
     Dosage: 15 MG, DAILY
     Route: 065

REACTIONS (1)
  - Neuropathy peripheral [Recovering/Resolving]
